FAERS Safety Report 8788078 (Version 2)
Quarter: 2012Q4

REPORT INFORMATION
  Report Type: 
  Country: US (occurrence: US)
  Receive Date: 20120914
  Receipt Date: 20121024
  Transmission Date: 20130627
  Serious: Yes (Life-Threatening, Other)
  Sender: FDA-Public Use
  Company Number: PHEH2011US013240

PATIENT
  Sex: Female
  Weight: 84.35 kg

DRUGS (7)
  1. RECLAST [Suspect]
     Route: 042
     Dates: start: 20111101
  2. PRISTIQ [Concomitant]
  3. CARBAMAZEPINE [Concomitant]
  4. LYRICA [Concomitant]
  5. LEVOTHYROXINE [Concomitant]
  6. LISINOPRIL [Concomitant]
  7. PREMARIN [Concomitant]

REACTIONS (11)
  - Suicidal ideation [Recovered/Resolved]
  - Depression [Recovered/Resolved]
  - Tongue disorder [Recovered/Resolved]
  - Glossodynia [Unknown]
  - Feeling abnormal [Unknown]
  - Pain [Unknown]
  - Pain in extremity [Unknown]
  - Arthralgia [Unknown]
  - Back pain [Unknown]
  - Musculoskeletal pain [Unknown]
  - Headache [Unknown]
